FAERS Safety Report 9711608 (Version 1)
Quarter: 2013Q4

REPORT INFORMATION
  Report Type: Spontaneous
  Country: CZ (occurrence: CZ)
  Receive Date: 20131126
  Receipt Date: 20131126
  Transmission Date: 20140711
  Serious: Yes (Life-Threatening, Hospitalization, Other)
  Sender: FDA-Public Use
  Company Number: CZ-TEVA-444624ISR

PATIENT
  Sex: Female
  Weight: 86 kg

DRUGS (1)
  1. BREVITAX 6 MG/ML [Suspect]
     Indication: OVARIAN CANCER
     Dosage: SINGLE DOSE 6MG/ML
     Route: 041
     Dates: start: 201309

REACTIONS (2)
  - Hypotension [Unknown]
  - Altered state of consciousness [Unknown]
